FAERS Safety Report 7740280-8 (Version None)
Quarter: 2011Q3

REPORT INFORMATION
  Report Type: 
  Country: None (occurrence: None)
  Receive Date: 20110909
  Receipt Date: 20110826
  Transmission Date: 20111222
  Serious: Yes (Hospitalization)
  Sender: FDA-Public Use
  Company Number: DE-ROCHE-801176

PATIENT
  Sex: Female
  Weight: 44 kg

DRUGS (7)
  1. SIMVASTATIN [Concomitant]
     Route: 048
  2. FUROSEMIDE [Concomitant]
     Route: 048
  3. ASPIRIN [Concomitant]
     Route: 048
  4. TRASTUZUMAB [Suspect]
     Dosage: 1 CYCLE
     Route: 042
  5. BISOPROLOL FUMARATE [Concomitant]
     Route: 048
  6. TRASTUZUMAB [Suspect]
     Dosage: 2ND CYCLE
     Route: 042
     Dates: start: 20110805
  7. LISINOPRIL [Concomitant]
     Route: 048

REACTIONS (4)
  - CARDIAC FAILURE [None]
  - CARDIAC DISORDER [None]
  - RADIATION INJURY [None]
  - MITRAL VALVE INCOMPETENCE [None]
